FAERS Safety Report 20877626 (Version 1)
Quarter: 2022Q2

REPORT INFORMATION
  Report Type: Spontaneous
  Country: US (occurrence: None)
  Receive Date: 20220526
  Receipt Date: 20220526
  Transmission Date: 20220721
  Serious: No
  Sender: FDA-Public Use
  Company Number: None

PATIENT
  Age: 72 Year
  Sex: Male

DRUGS (1)
  1. SOTROVIMAB [Suspect]
     Active Substance: SOTROVIMAB
     Indication: Diffuse large B-cell lymphoma
     Dosage: FREQUENCY : ONCE;?
     Route: 042
     Dates: start: 20220128, end: 20220128

REACTIONS (4)
  - Angina pectoris [None]
  - Pulmonary congestion [None]
  - Nasopharyngitis [None]
  - COVID-19 [None]

NARRATIVE: CASE EVENT DATE: 20220128
